FAERS Safety Report 25382161 (Version 1)
Quarter: 2025Q2

REPORT INFORMATION
  Report Type: Spontaneous
  Country: US (occurrence: US)
  Receive Date: 20250531
  Receipt Date: 20250531
  Transmission Date: 20250716
  Serious: No
  Sender: SANOFI AVENTIS
  Company Number: US-SA-2025SA153446

PATIENT
  Sex: Male
  Weight: 85.27 kg

DRUGS (15)
  1. DUPIXENT [Suspect]
     Active Substance: DUPILUMAB
     Indication: Dermatitis atopic
     Dosage: 300 MG, QOW
     Route: 058
  2. QULIPTA [Concomitant]
     Active Substance: ATOGEPANT
  3. ZORYVE [Concomitant]
     Active Substance: ROFLUMILAST
  4. METHOCARBAMOL [Concomitant]
     Active Substance: METHOCARBAMOL
  5. HYDROCORTISONE [Concomitant]
     Active Substance: HYDROCORTISONE
  6. PREDNISONE [Concomitant]
     Active Substance: PREDNISONE
  7. UBRELVY [Concomitant]
     Active Substance: UBROGEPANT
  8. PREDNISONE [Concomitant]
     Active Substance: PREDNISONE
  9. DOXEPIN HYDROCHLORIDE [Concomitant]
     Active Substance: DOXEPIN HYDROCHLORIDE
  10. KETOCONAZOLE [Concomitant]
     Active Substance: KETOCONAZOLE
  11. VANICREAM [Concomitant]
     Active Substance: TITANIUM DIOXIDE\ZINC OXIDE
  12. CYCLOBENZAPRINE HYDROCHLORIDE [Concomitant]
     Active Substance: CYCLOBENZAPRINE HYDROCHLORIDE
  13. CELECOXIB [Concomitant]
     Active Substance: CELECOXIB
  14. DICLOFENAC SODIUM [Concomitant]
     Active Substance: DICLOFENAC SODIUM
  15. BETAMETHASONE DIPROPIONATE [Concomitant]
     Active Substance: BETAMETHASONE DIPROPIONATE

REACTIONS (1)
  - Drug hypersensitivity [Unknown]
